FAERS Safety Report 5927376-8 (Version None)
Quarter: 2008Q4

REPORT INFORMATION
  Report Type: 
  Country: None (occurrence: None)
  Receive Date: 20081023
  Receipt Date: 20081014
  Transmission Date: 20090506
  Serious: Yes (Other)
  Sender: FDA-Public Use
  Company Number: GB-RANBAXY-2008RR-18683

PATIENT
  Age: 39 Year
  Sex: Female

DRUGS (4)
  1. TRAMADOL HCL [Suspect]
     Indication: ANALGESIA
     Dosage: 100 MG, UNK
     Route: 042
  2. MORPHINE SULFATE INJ [Suspect]
     Indication: ANALGESIA
     Dosage: 10 MG, UNK
  3. FENTANYL CITRATE [Concomitant]
     Indication: ANAESTHESIA
     Dosage: 100 UG, UNK
  4. MORPHINE [Concomitant]
     Indication: ANAESTHESIA
     Dosage: 10 MG, UNK

REACTIONS (3)
  - NAUSEA [None]
  - PAIN [None]
  - RETCHING [None]
